FAERS Safety Report 25038977 (Version 1)
Quarter: 2025Q1

REPORT INFORMATION
  Report Type: Spontaneous
  Country: US (occurrence: US)
  Receive Date: 20250305
  Receipt Date: 20250305
  Transmission Date: 20250409
  Serious: No
  Sender: BEIGENE
  Company Number: US-BEIGENE-BGN-2025-003091

PATIENT
  Age: 76 Year

DRUGS (1)
  1. BRUKINSA [Suspect]
     Active Substance: ZANUBRUTINIB
     Indication: Follicular lymphoma
     Dosage: 160 MILLIGRAM, BID, TAKING BRUKINSA FOR APPROXIMATELY 6 MONTHS

REACTIONS (3)
  - Conjunctival haemorrhage [Unknown]
  - Skin lesion [Unknown]
  - Skin haemorrhage [Unknown]
